FAERS Safety Report 21217261 (Version 1)
Quarter: 2022Q3

REPORT INFORMATION
  Report Type: Spontaneous
  Country: US (occurrence: US)
  Receive Date: 20220816
  Receipt Date: 20220816
  Transmission Date: 20221027
  Serious: Yes (Hospitalization)
  Sender: FDA-Public Use
  Company Number: US-LUPIN PHARMACEUTICALS INC.-2022-10307

PATIENT
  Age: 19 Year
  Sex: Male

DRUGS (15)
  1. GABAPENTIN [Suspect]
     Active Substance: GABAPENTIN
     Indication: Central pain syndrome
     Dosage: UNK
     Route: 065
  2. PREGABALIN [Suspect]
     Active Substance: PREGABALIN
     Indication: Central pain syndrome
     Dosage: UNK
     Route: 065
  3. METHADONE [Concomitant]
     Active Substance: METHADONE HYDROCHLORIDE
     Indication: Central pain syndrome
     Dosage: UNK
     Route: 065
  4. LIDOCAINE [Concomitant]
     Active Substance: LIDOCAINE
     Indication: Central pain syndrome
     Dosage: 1 MILLIGRAM/KILOGRAM, INTRAVENOUS BOLUS
     Route: 042
  5. LIDOCAINE [Concomitant]
     Active Substance: LIDOCAINE
     Dosage: 15 MICROGRAM/KILOGRAM, INTRAVENOUS INFUSION
     Route: 042
  6. LIDOCAINE [Concomitant]
     Active Substance: LIDOCAINE
     Dosage: 35 MICROGRAM/KILOGRAM, INTRAVENOUS INFUSION
     Route: 042
  7. MEXILETINE [Concomitant]
     Active Substance: MEXILETINE
     Indication: Central pain syndrome
     Dosage: 50 MG, TID
     Route: 065
  8. MEXILETINE [Concomitant]
     Active Substance: MEXILETINE
     Dosage: UNK, UP-TITRATED TO 150 MG THREE TIMES DAILY
     Route: 065
  9. MEXILETINE [Concomitant]
     Active Substance: MEXILETINE
     Dosage: 200 MG, TID
     Route: 065
  10. NORTRIPTYLINE [Concomitant]
     Active Substance: NORTRIPTYLINE
     Indication: Central pain syndrome
     Dosage: UNK
     Route: 065
  11. ACETAMINOPHEN [Concomitant]
     Active Substance: ACETAMINOPHEN
     Indication: Central pain syndrome
     Dosage: 1000 MILLIGRAM, TID
     Route: 065
  12. KETAMINE [Concomitant]
     Active Substance: KETAMINE
     Indication: Central pain syndrome
     Dosage: UNK
     Route: 065
  13. HYDROMORPHONE [Concomitant]
     Active Substance: HYDROMORPHONE
     Indication: Central pain syndrome
     Dosage: 3 MILLIGRAM, QID, AS NEEDED
  14. PREDNISONE [Concomitant]
     Active Substance: PREDNISONE
     Indication: Sickle cell anaemia with crisis
     Dosage: 40 MG, TAPERED DOSE
     Route: 065
  15. IBUPROFEN [Concomitant]
     Active Substance: IBUPROFEN
     Indication: Central pain syndrome
     Dosage: 800 MG, TID
     Route: 065

REACTIONS (2)
  - Drug ineffective for unapproved indication [Unknown]
  - Off label use [Unknown]
